FAERS Safety Report 7588497-X (Version None)
Quarter: 2011Q3

REPORT INFORMATION
  Report Type: 
  Country: None (occurrence: None)
  Receive Date: 20110705
  Receipt Date: 20110628
  Transmission Date: 20111222
  Serious: Yes (Other)
  Sender: FDA-Public Use
  Company Number: FR-PFIZER INC-2011143231

PATIENT
  Age: 58 Year
  Sex: Male

DRUGS (7)
  1. ASPIRIN [Concomitant]
  2. AMARYL [Concomitant]
  3. DIGOXIN [Concomitant]
  4. LEVOTHYROXINE SODIUM [Concomitant]
  5. TENORMIN [Concomitant]
  6. FIXICAL [Concomitant]
  7. ATORVASTATIN CALCIUM [Suspect]
     Indication: PROPHYLAXIS
     Dosage: 20 MG, 1X/DAY
     Route: 048
     Dates: start: 20090301, end: 20110201

REACTIONS (2)
  - TENDON RUPTURE [None]
  - FASCIITIS [None]
